FAERS Safety Report 11825467 (Version 1)
Quarter: 2015Q4

REPORT INFORMATION
  Report Type: Report from Study
  Country: US (occurrence: US)
  Receive Date: 20151211
  Receipt Date: 20151211
  Transmission Date: 20160305
  Serious: No
  Sender: FDA-Public Use
  Company Number: US-AMGEN-USASL2015131378

PATIENT
  Age: 49 Year
  Sex: Female

DRUGS (1)
  1. ENBREL [Suspect]
     Active Substance: ETANERCEPT
     Indication: RHEUMATOID ARTHRITIS
     Dosage: UNK UNK, QWK
     Route: 065
     Dates: start: 2015

REACTIONS (13)
  - Throat tightness [Unknown]
  - Vitamin B6 decreased [Unknown]
  - Cough [Unknown]
  - Pyrexia [Unknown]
  - Haemoptysis [Unknown]
  - Injection site irritation [Recovered/Resolved]
  - Neck pain [Unknown]
  - No therapeutic response [Unknown]
  - Malaise [Unknown]
  - Fatigue [Unknown]
  - Sweat gland disorder [Unknown]
  - Injection site pain [Unknown]
  - Arthralgia [Not Recovered/Not Resolved]

NARRATIVE: CASE EVENT DATE: 2015
